FAERS Safety Report 12428270 (Version 3)
Quarter: 2016Q2

REPORT INFORMATION
  Report Type: Spontaneous
  Country: US (occurrence: US)
  Receive Date: 20160602
  Receipt Date: 20160620
  Transmission Date: 20160815
  Serious: Yes (Other)
  Sender: FDA-Public Use
  Company Number: US-CIPLA LTD.-2016US06003

PATIENT

DRUGS (11)
  1. METOPROLOL. [Suspect]
     Active Substance: METOPROLOL
     Dosage: 50 MG, BID
     Route: 048
  2. HYDROXYCHLOROQUINE [Suspect]
     Active Substance: HYDROXYCHLOROQUINE
     Dosage: 200 MG, DAILY
     Route: 048
  3. INSULIN ASPART [Suspect]
     Active Substance: INSULIN ASPART
     Dosage: UNK
     Route: 058
  4. GABAPENTIN. [Suspect]
     Active Substance: GABAPENTIN
     Dosage: 300 MG, QD
     Route: 048
  5. WARFARIN [Suspect]
     Active Substance: WARFARIN
     Dosage: 5 TO 10 MG DAILY
     Route: 048
  6. TRAMADOL. [Suspect]
     Active Substance: TRAMADOL
     Dosage: 100 MG, DAILY
     Route: 048
  7. DOXYCYCLINE. [Suspect]
     Active Substance: DOXYCYCLINE
     Dosage: 20 MG, BID
     Route: 048
  8. GABAPENTIN. [Suspect]
     Active Substance: GABAPENTIN
     Indication: NEURALGIA
     Dosage: 300 MG ORALLY FOUR TIMES DAILY PLUS 600 MG AT BEDTIME (TOTAL DAILY DOSE 1800 MG)
     Route: 048
  9. LANSOPRAZOLE. [Suspect]
     Active Substance: LANSOPRAZOLE
     Dosage: 30 MG, DAILY
     Route: 048
  10. TERIPARATIDE [Suspect]
     Active Substance: TERIPARATIDE
     Dosage: 20 ?G, DAILY
     Route: 058
  11. PRAVASTATIN [Suspect]
     Active Substance: PRAVASTATIN\PRAVASTATIN SODIUM
     Dosage: 20 MG, DAILY
     Route: 048

REACTIONS (4)
  - Fatigue [Recovered/Resolved]
  - Somnolence [Recovered/Resolved]
  - Hallucination, visual [Recovered/Resolved]
  - Treatment noncompliance [Unknown]
